FAERS Safety Report 7291670-1 (Version None)
Quarter: 2011Q1

REPORT INFORMATION
  Report Type: 
  Country: None (occurrence: None)
  Receive Date: 20110214
  Receipt Date: 20110201
  Transmission Date: 20110831
  Serious: Yes (Death, Other)
  Sender: FDA-Public Use
  Company Number: US-ELI_LILLY_AND_COMPANY-US201102000864

PATIENT
  Age: 61 Year
  Sex: Male

DRUGS (5)
  1. PACLITAXEL [Concomitant]
     Indication: TRANSITIONAL CELL CARCINOMA
     Dosage: 200 MG/M2, UNK
  2. GEMCITABINE HYDROCHLORIDE [Suspect]
     Indication: TRANSITIONAL CELL CARCINOMA
     Dosage: 800 MG/M2, UNK
  3. CARBOPLATIN [Concomitant]
     Indication: TRANSITIONAL CELL CARCINOMA
  4. TRASTUZUMAB [Concomitant]
     Dosage: 2 MG/KG, UNK
  5. TRASTUZUMAB [Concomitant]
     Dosage: 4 MG/KG, UNK

REACTIONS (2)
  - DEATH [None]
  - METASTASES TO MENINGES [None]
